FAERS Safety Report 8128686-9 (Version None)
Quarter: 2012Q1

REPORT INFORMATION
  Report Type: 
  Country: None (occurrence: None)
  Receive Date: 20120210
  Receipt Date: 20110127
  Transmission Date: 20120608
  Serious: No
  Sender: FDA-Public Use
  Company Number: US-BRISTOL-MYERS SQUIBB COMPANY-15451677

PATIENT
  Age: 29 Year
  Sex: Female

DRUGS (3)
  1. IBUPROFEN (ADVIL) [Suspect]
  2. PREDNISONE TAB [Suspect]
     Indication: IMMOBILE
  3. ORENCIA [Suspect]
     Dosage: STARTED 4 MONTHS AGO NO OF DOSE RECEIVED:6

REACTIONS (9)
  - RENAL DISORDER [None]
  - DYSPNOEA [None]
  - MALAISE [None]
  - MYALGIA [None]
  - VOMITING [None]
  - JOINT SWELLING [None]
  - DIARRHOEA [None]
  - DEHYDRATION [None]
  - DYSPHAGIA [None]
